FAERS Safety Report 7048393-3 (Version None)
Quarter: 2010Q4

REPORT INFORMATION
  Report Type: 
  Country: None (occurrence: None)
  Receive Date: 20101015
  Receipt Date: 20101015
  Transmission Date: 20110411
  Serious: No
  Sender: FDA-Public Use
  Company Number: None

PATIENT
  Age: 57 Year
  Sex: Female
  Weight: 51.2565 kg

DRUGS (2)
  1. FLUDROCORTISONE ACETATE [Suspect]
     Dosage: 0.05 MG 1 X DAILY ORAL
     Route: 048
     Dates: start: 20100801
  2. FLUDROCORTISONE ACETATE [Suspect]
     Dosage: 0.05 MG 1 X DAILY ORAL
     Route: 048
     Dates: start: 20100820

REACTIONS (2)
  - DRUG INEFFECTIVE [None]
  - PRODUCT SUBSTITUTION ISSUE [None]
